FAERS Safety Report 17679845 (Version 4)
Quarter: 2020Q2

REPORT INFORMATION
  Report Type: Spontaneous
  Country: CN (occurrence: CN)
  Receive Date: 20200417
  Receipt Date: 20200501
  Transmission Date: 20200714
  Serious: Yes (Death)
  Sender: FDA-Public Use
  Company Number: CN-ASTRAZENECA-2020SE50319

PATIENT
  Age: 76 Year
  Sex: Male
  Weight: 63 kg

DRUGS (1)
  1. IRESSA [Suspect]
     Active Substance: GEFITINIB
     Route: 048
     Dates: start: 20200331, end: 20200409

REACTIONS (9)
  - Sepsis [Fatal]
  - Metastases to liver [Fatal]
  - Metastasis [Fatal]
  - Metastases to abdominal cavity [Fatal]
  - Shock [Fatal]
  - Infection [Fatal]
  - Decreased appetite [Unknown]
  - Metastases to bone [Fatal]
  - Cardio-respiratory arrest [Fatal]

NARRATIVE: CASE EVENT DATE: 20200411
